FAERS Safety Report 6391101-X (Version None)
Quarter: 2009Q4

REPORT INFORMATION
  Report Type: 
  Country: None (occurrence: None)
  Receive Date: 20091006
  Receipt Date: 20091006
  Transmission Date: 20100525
  Serious: Yes (Other)
  Sender: FDA-Public Use
  Company Number: None

PATIENT
  Sex: Female

DRUGS (2)
  1. SERTRALINE HCL [Suspect]
     Dosage: 50 MG TAB QAM PO
     Route: 048
     Dates: start: 20080101
  2. SERTRALINE HCL [Suspect]
     Dosage: 50 MG TAB QAM PO
     Route: 048
     Dates: start: 20090101

REACTIONS (2)
  - ABDOMINAL DISCOMFORT [None]
  - NAUSEA [None]
